FAERS Safety Report 25963215 (Version 1)
Quarter: 2025Q4

REPORT INFORMATION
  Report Type: Spontaneous
  Country: EU (occurrence: EU)
  Receive Date: 20251027
  Receipt Date: 20251027
  Transmission Date: 20260117
  Serious: Yes (Life-Threatening, Hospitalization, Other)
  Sender: SANOFI AVENTIS
  Company Number: EU-SANOFI-02696266

PATIENT
  Age: 36 Year
  Sex: Male
  Weight: 89 kg

DRUGS (12)
  1. ENOXAPARIN SODIUM [Suspect]
     Active Substance: ENOXAPARIN SODIUM
     Indication: Product used for unknown indication
     Dosage: UNK
     Route: 065
     Dates: start: 20230116, end: 20240202
  2. ZOLPIDEM TARTRATE [Suspect]
     Active Substance: ZOLPIDEM TARTRATE
     Indication: Sleep disorder
     Dosage: 10 MG
     Route: 065
     Dates: start: 20230202, end: 20240415
  3. QUETIAPINE [Suspect]
     Active Substance: QUETIAPINE
     Indication: Pain management
     Dosage: UNK
  4. QUETIAPINE [Suspect]
     Active Substance: QUETIAPINE
     Indication: Sleep disorder
  5. TAVOR (LORAZEPAM) [Suspect]
     Active Substance: LORAZEPAM
     Indication: Product used for unknown indication
     Dosage: 1 MG
  6. VITAMIN B12 [Concomitant]
     Active Substance: CYANOCOBALAMIN
     Indication: Product used for unknown indication
     Dosage: UNK
     Dates: start: 20080915
  7. IRON\MINERALS\VITAMINS [Concomitant]
     Active Substance: IRON\MINERALS\VITAMINS
     Indication: Product used for unknown indication
     Dosage: UNK
     Dates: start: 20140414
  8. MELATONIN [Concomitant]
     Active Substance: MELATONIN
     Indication: Product used for unknown indication
     Dosage: UNK
     Dates: start: 20210115
  9. CHOLECALCIFEROL [Concomitant]
     Active Substance: CHOLECALCIFEROL
     Indication: Product used for unknown indication
     Dosage: UNK
     Dates: start: 20210809
  10. TILIDINE HYDROCHLORIDE [Concomitant]
     Active Substance: TILIDINE HYDROCHLORIDE
     Indication: Product used for unknown indication
     Dosage: UNK
     Dates: start: 20230104
  11. AMOXICILLIN [Concomitant]
     Active Substance: AMOXICILLIN
     Indication: Product used for unknown indication
     Dosage: UNK
     Dates: start: 20230217
  12. TAZOBACTAM [Concomitant]
     Active Substance: TAZOBACTAM
     Indication: Product used for unknown indication
     Dosage: UNK
     Dates: start: 20230217, end: 20230222

REACTIONS (1)
  - Suicide attempt [Recovered/Resolved]

NARRATIVE: CASE EVENT DATE: 20230224
